FAERS Safety Report 8412928 (Version 4)
Quarter: 2013Q1

REPORT INFORMATION
  Report Type: Report from Study
  Country: CA (occurrence: CA)
  Receive Date: 20120217
  Receipt Date: 20130124
  Transmission Date: 20140127
  Serious: Yes (Other)
  Sender: FDA-Public Use
  Company Number: CA-ROCHE-1039992

PATIENT
  Age: 38 Year
  Sex: Female

DRUGS (5)
  1. OMALIZUMAB [Suspect]
     Indication: ASTHMA
     Route: 058
     Dates: start: 20111213
  2. SYMBICORT [Concomitant]
  3. ALVESCO [Concomitant]
  4. SINGULAIR [Concomitant]
  5. SODIUM BICARBONATE/SODIUM CHLORIDE [Concomitant]

REACTIONS (6)
  - Cystic fibrosis [Unknown]
  - Productive cough [Unknown]
  - Pneumonia [Unknown]
  - Injection site erythema [Unknown]
  - Injection site swelling [Unknown]
  - Influenza [Recovering/Resolving]
